FAERS Safety Report 13921767 (Version 1)
Quarter: 2017Q3

REPORT INFORMATION
  Report Type: Spontaneous
  Country: US (occurrence: None)
  Receive Date: 20170830
  Receipt Date: 20170830
  Transmission Date: 20171127
  Serious: Yes (Other)
  Sender: FDA-Public Use
  Company Number: None

PATIENT
  Age: 53 Year
  Sex: Female

DRUGS (1)
  1. LEVAQUIN [Suspect]
     Active Substance: LEVOFLOXACIN
     Indication: PNEUMONIA
     Dates: start: 20170612, end: 20170620

REACTIONS (10)
  - Cardiac fibrillation [None]
  - Arthralgia [None]
  - Joint swelling [None]
  - Paraesthesia [None]
  - Insomnia [None]
  - Tendon pain [None]
  - Musculoskeletal stiffness [None]
  - Loss of personal independence in daily activities [None]
  - Myalgia [None]
  - Muscle twitching [None]

NARRATIVE: CASE EVENT DATE: 20170613
